FAERS Safety Report 26069659 (Version 1)
Quarter: 2025Q4

REPORT INFORMATION
  Report Type: Spontaneous
  Country: US (occurrence: None)
  Receive Date: 20251119
  Receipt Date: 20251119
  Transmission Date: 20260117
  Serious: Yes (Other)
  Sender: FDA-CTU
  Company Number: None

PATIENT

DRUGS (1)
  1. DUPIXENT [Suspect]
     Active Substance: DUPILUMAB

REACTIONS (4)
  - Swollen tongue [None]
  - Glossodynia [None]
  - Plicated tongue [None]
  - Tongue erythema [None]

NARRATIVE: CASE EVENT DATE: 20251119
